FAERS Safety Report 4811620-4 (Version None)
Quarter: 2005Q4

REPORT INFORMATION
  Report Type: 
  Country: None (occurrence: None)
  Receive Date: 20051027
  Receipt Date: 20050610
  Transmission Date: 20060501
  Serious: Yes (Hospitalization)
  Sender: FDA-Public Use
  Company Number: US-MERCK-0506USA02014

PATIENT
  Age: 66 Year
  Sex: Male
  Weight: 93 kg

DRUGS (9)
  1. VIOXX [Suspect]
     Indication: OSTEOARTHRITIS
     Route: 048
     Dates: start: 19990701, end: 20030101
  2. MAVIK [Concomitant]
     Indication: HYPERTENSION
     Route: 065
     Dates: start: 20020522, end: 20030526
  3. LIPITOR [Concomitant]
     Indication: BLOOD CHOLESTEROL INCREASED
     Route: 065
     Dates: start: 19900101
  4. PRINIVIL [Suspect]
     Route: 048
  5. METOPROLOL [Suspect]
     Route: 065
  6. PLAVIX [Suspect]
     Route: 065
  7. NIASPAN [Suspect]
     Route: 065
  8. TYLENOL (CAPLET) [Suspect]
     Route: 065
  9. NITROQUICK [Suspect]
     Route: 065

REACTIONS (7)
  - BLOOD CHOLESTEROL INCREASED [None]
  - BLOOD TRIGLYCERIDES INCREASED [None]
  - GASTROINTESTINAL HAEMORRHAGE [None]
  - JOINT DISLOCATION [None]
  - JOINT DISLOCATION REDUCTION [None]
  - MYOCARDIAL INFARCTION [None]
  - ULCER [None]
